FAERS Safety Report 12384789 (Version 1)
Quarter: 2016Q2

REPORT INFORMATION
  Report Type: Spontaneous
  Country: US (occurrence: None)
  Receive Date: 20160518
  Receipt Date: 20160518
  Transmission Date: 20160815
  Serious: Yes (Other)
  Sender: FDA-Public Use
  Company Number: None

PATIENT
  Age: 29 Year
  Sex: Female
  Weight: 67.13 kg

DRUGS (2)
  1. ESCITALOPRAM [Suspect]
     Active Substance: ESCITALOPRAM OXALATE
     Indication: GENERALISED ANXIETY DISORDER
     Dosage: 1/2 TABLET DAILY ORAL
     Route: 048
     Dates: start: 20160422, end: 20160427
  2. ESCITALOPRAM [Suspect]
     Active Substance: ESCITALOPRAM OXALATE
     Indication: OBSESSIVE-COMPULSIVE DISORDER
     Dosage: 1/2 TABLET DAILY ORAL
     Route: 048
     Dates: start: 20160422, end: 20160427

REACTIONS (11)
  - Restlessness [None]
  - Anxiety [None]
  - Dyspnoea [None]
  - Headache [None]
  - Suicidal ideation [None]
  - Tachyphrenia [None]
  - Agitation [None]
  - Nausea [None]
  - Diarrhoea [None]
  - Feeling abnormal [None]
  - Decreased appetite [None]

NARRATIVE: CASE EVENT DATE: 20160424
